FAERS Safety Report 17864948 (Version 1)
Quarter: 2020Q2

REPORT INFORMATION
  Report Type: Spontaneous
  Country: US (occurrence: US)
  Receive Date: 20200605
  Receipt Date: 20200605
  Transmission Date: 20200714
  Serious: No
  Sender: FDA-Public Use
  Company Number: US-DENDREON PHARMACEUTICAL LLC-2019DEN000255

PATIENT

DRUGS (9)
  1. PROVENGE [Suspect]
     Active Substance: SIPULEUCEL-T
     Dosage: DOSE # 2
     Route: 042
     Dates: start: 20100624, end: 20190624
  2. HEPARIN [Suspect]
     Active Substance: HEPARIN SODIUM
     Dosage: DOSE # 2
     Route: 042
     Dates: start: 20190610, end: 20190610
  3. HEPARIN [Suspect]
     Active Substance: HEPARIN SODIUM
     Dosage: DOSE # 4
     Route: 042
     Dates: start: 20190624, end: 20190624
  4. PROVENGE [Suspect]
     Active Substance: SIPULEUCEL-T
     Dosage: DOSE # 3
     Route: 042
     Dates: start: 20190708, end: 20190708
  5. HEPARIN [Suspect]
     Active Substance: HEPARIN SODIUM
     Dosage: DOSE # 3
     Route: 042
     Dates: start: 20190621, end: 20190621
  6. HEPARIN [Suspect]
     Active Substance: HEPARIN SODIUM
     Dosage: DOSE # 6
     Route: 042
     Dates: start: 20190708, end: 20190708
  7. PROVENGE [Suspect]
     Active Substance: SIPULEUCEL-T
     Indication: PROSTATE CANCER METASTATIC
     Dosage: DOSE # 1
     Route: 042
     Dates: start: 20190610, end: 20190610
  8. HEPARIN [Suspect]
     Active Substance: HEPARIN SODIUM
     Indication: PROPHYLAXIS
     Dosage: DOSE # 1
     Route: 042
     Dates: start: 20190607, end: 20190607
  9. HEPARIN [Suspect]
     Active Substance: HEPARIN SODIUM
     Dosage: DOSE # 5
     Route: 042
     Dates: start: 20190705, end: 20190705

REACTIONS (1)
  - Dyspnoea [Recovered/Resolved]

NARRATIVE: CASE EVENT DATE: 20190624
